FAERS Safety Report 8964272 (Version 1)
Quarter: 2012Q4

REPORT INFORMATION
  Report Type: 
  Country: US (occurrence: US)
  Receive Date: 20121214
  Receipt Date: 20121214
  Transmission Date: 20130627
  Serious: No
  Sender: FDA-Public Use
  Company Number: US-GLAXOSMITHKLINE-A0956773A

PATIENT
  Sex: Male

DRUGS (1)
  1. AVODART [Suspect]
     Route: 065

REACTIONS (3)
  - Sinus disorder [Not Recovered/Not Resolved]
  - Increased upper airway secretion [Not Recovered/Not Resolved]
  - Insomnia [Not Recovered/Not Resolved]
